FAERS Safety Report 21819648 (Version 1)
Quarter: 2023Q1

REPORT INFORMATION
  Report Type: Spontaneous
  Country: US (occurrence: US)
  Receive Date: 20230104
  Receipt Date: 20230104
  Transmission Date: 20230418
  Serious: No
  Sender: FDA-Public Use
  Company Number: US-SA-SAC20230103000624

PATIENT
  Age: 66 Year
  Sex: Female

DRUGS (2)
  1. DUPIXENT [Suspect]
     Active Substance: DUPILUMAB
     Indication: Neurodermatitis
     Dosage: 300 MG, QOW
     Route: 058
     Dates: start: 202212
  2. HYOSCYAMINE [Suspect]
     Active Substance: HYOSCYAMINE
     Dosage: UNK
     Dates: start: 202209

REACTIONS (3)
  - Dry mouth [Unknown]
  - Gingival discomfort [Unknown]
  - Glossitis [Unknown]
